FAERS Safety Report 12661876 (Version 1)
Quarter: 2016Q3

REPORT INFORMATION
  Report Type: Spontaneous
  Country: US (occurrence: US)
  Receive Date: 20160817
  Receipt Date: 20160817
  Transmission Date: 20161109
  Serious: Yes (Hospitalization)
  Sender: FDA-Public Use
  Company Number: US-MALLINCKRODT-T201603436

PATIENT
  Age: 90 Year
  Sex: Male
  Weight: 82 kg

DRUGS (3)
  1. FENTANYL TRANSDERMAL SYSTEM [Suspect]
     Active Substance: FENTANYL
     Dosage: 50 ?G/HR (2-25 ?G/HR PATCHES), Q48H
     Route: 062
     Dates: start: 201608
  2. FENTANYL TRANSDERMAL SYSTEM [Suspect]
     Active Substance: FENTANYL
     Indication: PAIN
     Dosage: 50 MCG/HR, Q72H
     Route: 062
     Dates: start: 2013, end: 201607
  3. FENTANYL TRANSDERMAL SYSTEM [Suspect]
     Active Substance: FENTANYL
     Dosage: 25 ?G/HR, Q48H
     Route: 062
     Dates: start: 201607, end: 2016

REACTIONS (5)
  - Drug withdrawal syndrome [Recovered/Resolved]
  - Drug ineffective [Recovering/Resolving]
  - Drug effect decreased [Recovering/Resolving]
  - Intentional product use issue [Not Recovered/Not Resolved]
  - Thrombosis [Unknown]

NARRATIVE: CASE EVENT DATE: 201608
